FAERS Safety Report 4840873-1 (Version None)
Quarter: 2005Q4

REPORT INFORMATION
  Report Type: 
  Country: None (occurrence: None)
  Receive Date: 20051130
  Receipt Date: 20051121
  Transmission Date: 20060501
  Serious: Yes (Death)
  Sender: FDA-Public Use
  Company Number: US-BRISTOL-MYERS SQUIBB COMPANY-13188784

PATIENT
  Age: 61 Year
  Sex: Male

DRUGS (7)
  1. GLUCOPHAGE [Suspect]
     Indication: DIABETES MELLITUS NON-INSULIN-DEPENDENT
  2. PLAVIX [Suspect]
     Indication: COAGULOPATHY
  3. GLUCOVANCE [Concomitant]
  4. NEXIUM [Concomitant]
  5. NORVASC [Concomitant]
  6. COREG [Concomitant]
  7. LESCOL XL [Concomitant]

REACTIONS (1)
  - MYOCARDIAL INFARCTION [None]
